FAERS Safety Report 7318921-9 (Version None)
Quarter: 2011Q1

REPORT INFORMATION
  Report Type: 
  Country: None (occurrence: None)
  Receive Date: 20110228
  Receipt Date: 20110215
  Transmission Date: 20110831
  Serious: Yes (Hospitalization)
  Sender: FDA-Public Use
  Company Number: US-ELI_LILLY_AND_COMPANY-US201102004715

PATIENT
  Sex: Male

DRUGS (17)
  1. HYDROCHLOROTHIAZIDE [Concomitant]
     Dosage: 25 MG, UNKNOWN
     Route: 065
  2. ASPIRIN [Concomitant]
     Dosage: UNK, 2 PILLS DAILY (1/D)
     Route: 065
  3. PREDNISONE [Concomitant]
     Dosage: 10 MG, UNKNOWN
     Route: 065
  4. LOVAZA [Concomitant]
     Dosage: UNK, UNKNOWN
     Route: 065
  5. AVODART [Concomitant]
     Dosage: 0.05 MG, UNKNOWN
     Route: 065
  6. GLUCOSAMINE [Concomitant]
     Dosage: UNK, UNKNOWN
     Route: 065
  7. LOSARTAN POTASSIUM [Concomitant]
     Dosage: 50 MG, DAILY (1/D)
     Route: 065
  8. VITAMIN A [Concomitant]
     Dosage: UNK, UNKNOWN
     Route: 065
  9. PREDNISONE [Concomitant]
     Dosage: 12 MG, DAILY (1/D)
     Route: 065
  10. SIMVASTATIN [Concomitant]
     Dosage: 10 MG, UNKNOWN
     Route: 065
  11. SAW PALMETTO [Concomitant]
     Dosage: UNK, UNKNOWN
     Route: 065
  12. UROXATRAL [Concomitant]
     Dosage: 10 MG, UNKNOWN
     Route: 065
  13. FORTEO [Suspect]
     Indication: OSTEOPOROSIS
     Dosage: 20 UG, DAILY (1/D)
     Route: 065
     Dates: start: 20110208, end: 20110208
  14. GLUCOSINE [Concomitant]
     Dosage: UNK, UNKNOWN
     Route: 065
  15. ASCORBIC ACID [Concomitant]
     Dosage: UNK, UNKNOWN
     Route: 065
  16. VITAMIN D [Concomitant]
  17. CALCIUM W/VITAMIN D NOS [Concomitant]
     Dosage: 600/UNKNOWN

REACTIONS (6)
  - MYALGIA [None]
  - PAIN [None]
  - PYREXIA [None]
  - CHILLS [None]
  - RED BLOOD CELL SEDIMENTATION RATE INCREASED [None]
  - INFLUENZA LIKE ILLNESS [None]
